FAERS Safety Report 9607655 (Version 2)
Quarter: 2013Q4

REPORT INFORMATION
  Report Type: Spontaneous
  Country: US (occurrence: US)
  Receive Date: 20131009
  Receipt Date: 20131015
  Transmission Date: 20140711
  Serious: Yes (Other)
  Sender: FDA-Public Use
  Company Number: US-JNJFOC-20131003703

PATIENT
  Age: 8 Decade
  Sex: Male
  Weight: 106 kg

DRUGS (15)
  1. ECONAZOLE NITRATE [Suspect]
     Indication: PRODUCT USED FOR UNKNOWN INDICATION
     Route: 065
     Dates: start: 20030922
  2. COUMADIN [Suspect]
     Indication: ATRIAL FIBRILLATION
     Dosage: TU-TH-SA-SU
     Route: 048
     Dates: end: 20030924
  3. COUMADIN [Suspect]
     Indication: ATRIAL FIBRILLATION
     Dosage: 1 AND 1/2 M-W-F AND 3 MG ON TU-TH-SA-SU
     Route: 048
     Dates: start: 20030926
  4. BROMOCRYPTINE MESYLATE [Concomitant]
     Route: 065
  5. DISOPYRAMIDE PHOSPHATE [Concomitant]
     Route: 065
  6. DYAZIDE [Concomitant]
     Route: 065
  7. FLUDROCORTISONE ACETATE [Concomitant]
     Route: 065
  8. FOLIC ACID [Concomitant]
     Route: 065
  9. LEVOTHYROXINE [Concomitant]
     Route: 065
  10. METHYLPREDNISOLONE [Concomitant]
     Route: 065
     Dates: start: 20030902
  11. NEXIUM [Concomitant]
     Route: 065
  12. PREDNISONE [Concomitant]
     Route: 065
  13. RANITIDINE [Concomitant]
     Route: 065
  14. TESTOSTERONE [Concomitant]
     Route: 030
  15. TYLENOL [Concomitant]
     Dosage: TAKEN SPORADICALLY
     Route: 065

REACTIONS (1)
  - International normalised ratio increased [Recovering/Resolving]
